FAERS Safety Report 23397876 (Version 1)
Quarter: 2024Q1

REPORT INFORMATION
  Report Type: Spontaneous
  Country: US (occurrence: None)
  Receive Date: 20240111
  Receipt Date: 20240111
  Transmission Date: 20240409
  Serious: Yes (Hospitalization)
  Sender: FDA-Public Use
  Company Number: None

PATIENT
  Sex: 0

DRUGS (1)
  1. REGADENOSON [Suspect]
     Active Substance: REGADENOSON

REACTIONS (4)
  - Cerebrovascular accident [None]
  - Hemiparesis [None]
  - Speech disorder [None]
  - Immediate post-injection reaction [None]

NARRATIVE: CASE EVENT DATE: 20240111
